FAERS Safety Report 11488165 (Version 1)
Quarter: 2015Q3

REPORT INFORMATION
  Report Type: Spontaneous
  Country: CH (occurrence: None)
  Receive Date: 20150909
  Receipt Date: 20150909
  Transmission Date: 20151125
  Serious: Yes (Life-Threatening, Other)
  Sender: FDA-Public Use
  Company Number: CH-MDT-ADR-2015-01738

PATIENT
  Sex: Male

DRUGS (1)
  1. BACLOFEN. [Suspect]
     Active Substance: BACLOFEN
     Indication: ALCOHOL ABUSE
     Dosage: 210MG/DAY

REACTIONS (6)
  - Feeling abnormal [None]
  - Confusional state [None]
  - Toxicity to various agents [None]
  - Impulsive behaviour [None]
  - Anxiety [None]
  - Somnolence [None]
